FAERS Safety Report 6273066-4 (Version None)
Quarter: 2009Q3

REPORT INFORMATION
  Report Type: 
  Country: None (occurrence: None)
  Receive Date: 20090715
  Receipt Date: 20090715
  Transmission Date: 20100115
  Serious: No
  Sender: FDA-Public Use
  Company Number: None

PATIENT
  Sex: Male
  Weight: 77.6 kg

DRUGS (5)
  1. CARBOPLATIN [Suspect]
     Dosage: 900 MG
  2. TAXOL [Suspect]
     Dosage: 400 MG
  3. CLOZAPINE [Concomitant]
  4. DEPAKOTE [Concomitant]
  5. MULTI-VITAMIN [Concomitant]

REACTIONS (1)
  - PLATELET COUNT DECREASED [None]
